FAERS Safety Report 8912252 (Version 1)
Quarter: 2012Q4

REPORT INFORMATION
  Report Type: 
  Country: US (occurrence: US)
  Receive Date: 20121115
  Receipt Date: 20121115
  Transmission Date: 20130627
  Serious: Yes (Death)
  Sender: FDA-Public Use
  Company Number: US-ACTELION-A-NJ2012-74284

PATIENT
  Age: 53 Year
  Sex: Female

DRUGS (3)
  1. VELETRI [Suspect]
     Indication: PULMONARY ARTERIAL HYPERTENSION
     Dosage: 28.4 ng/kg, per min
     Route: 041
     Dates: start: 20110915, end: 20121106
  2. SILDENAFIL [Concomitant]
  3. COUMADIN [Concomitant]
     Dosage: UNK

REACTIONS (1)
  - Death [Fatal]
